FAERS Safety Report 7998701-1 (Version None)
Quarter: 2011Q4

REPORT INFORMATION
  Report Type: 
  Country: None (occurrence: None)
  Receive Date: 20111221
  Receipt Date: 20111216
  Transmission Date: 20120403
  Serious: Yes (Congenital Anomaly, Other)
  Sender: FDA-Public Use
  Company Number: US-PFIZER INC-2011295959

PATIENT
  Sex: Male
  Weight: 1.105 kg

DRUGS (5)
  1. METROGEL [Concomitant]
     Dosage: UNK
     Route: 064
     Dates: start: 20040202
  2. ALBUTEROL [Concomitant]
     Route: 064
  3. CALCIUM [Concomitant]
     Dosage: DAILY
     Route: 064
  4. ZOLOFT [Suspect]
     Indication: DEPRESSION
     Dosage: UNK
     Route: 064
  5. MULTI-VITAMINS [Concomitant]
     Dosage: DAILY
     Route: 064

REACTIONS (3)
  - MATERNAL EXPOSURE TIMING UNSPECIFIED [None]
  - GASTROSCHISIS [None]
  - FOETAL GROWTH RESTRICTION [None]
